FAERS Safety Report 11754051 (Version 1)
Quarter: 2015Q4

REPORT INFORMATION
  Report Type: Spontaneous
  Country: US (occurrence: None)
  Receive Date: 20151118
  Receipt Date: 20151118
  Transmission Date: 20160304
  Serious: Yes (Other)
  Sender: FDA-Public Use
  Company Number: None

PATIENT
  Age: 45 Year
  Sex: Female

DRUGS (1)
  1. HUMIRA [Suspect]
     Active Substance: ADALIMUMAB
     Indication: RHEUMATOID ARTHRITIS
     Dosage: EVERY OTHER WEEK
     Route: 058
     Dates: start: 20150623

REACTIONS (5)
  - Dizziness [None]
  - Loss of consciousness [None]
  - Swollen tongue [None]
  - Chest discomfort [None]
  - Rash [None]

NARRATIVE: CASE EVENT DATE: 20151117
